FAERS Safety Report 7453393-5 (Version None)
Quarter: 2011Q2

REPORT INFORMATION
  Report Type: 
  Country: None (occurrence: None)
  Receive Date: 20110502
  Receipt Date: 20110203
  Transmission Date: 20111010
  Serious: No
  Sender: FDA-Public Use
  Company Number: US-ASTRAZENECA-2011SE06092

PATIENT
  Sex: Female

DRUGS (3)
  1. NON STEROIDAL ANTIINFLAMMATORY DRUG [Concomitant]
     Indication: BACK PAIN
  2. NEXIUM [Suspect]
     Indication: GASTROOESOPHAGEAL REFLUX DISEASE
     Dosage: TWO HOURS PRIOR TO A MEAL
     Route: 048
  3. MUSCLE RELAXANT [Concomitant]
     Indication: BACK PAIN

REACTIONS (5)
  - GASTROOESOPHAGEAL REFLUX DISEASE [None]
  - DRUG INEFFECTIVE [None]
  - FALL [None]
  - HIATUS HERNIA [None]
  - ABDOMINAL PAIN [None]
